FAERS Safety Report 8290486-7 (Version None)
Quarter: 2012Q2

REPORT INFORMATION
  Report Type: 
  Country: None (occurrence: None)
  Receive Date: 20120417
  Receipt Date: 20110521
  Transmission Date: 20120825
  Serious: No
  Sender: FDA-Public Use
  Company Number: US-ASTRAZENECA-2011SE31476

PATIENT
  Sex: Male
  Weight: 77.6 kg

DRUGS (6)
  1. NEXIUM [Suspect]
     Indication: FLATULENCE
     Route: 048
     Dates: start: 20110518
  2. ACTOS [Concomitant]
     Indication: DIABETES MELLITUS
  3. AVALIDE [Concomitant]
     Indication: HYPERTENSION
  4. CLONIDINE [Concomitant]
     Indication: HYPERTENSION
  5. MEDANX VITAMIN [Concomitant]
  6. TYLENOL (CAPLET) [Concomitant]

REACTIONS (4)
  - ABDOMINAL DISCOMFORT [None]
  - NAUSEA [None]
  - OFF LABEL USE [None]
  - DIARRHOEA [None]
